FAERS Safety Report 25586097 (Version 3)
Quarter: 2025Q4

REPORT INFORMATION
  Report Type: Spontaneous
  Country: US (occurrence: US)
  Receive Date: 20250721
  Receipt Date: 20251215
  Transmission Date: 20260117
  Serious: Yes (Other)
  Sender: INCYTE
  Company Number: US-EVENT-003617

PATIENT
  Age: 78 Year

DRUGS (3)
  1. JAKAFI [Suspect]
     Active Substance: RUXOLITINIB
     Indication: Essential thrombocythaemia
     Dosage: 10 MILLIGRAM, BID
     Route: 065
  2. JAKAFI [Suspect]
     Active Substance: RUXOLITINIB
     Dosage: 5 MILLIGRAM, BID
     Route: 065
  3. JAKAFI [Suspect]
     Active Substance: RUXOLITINIB
     Dosage: 10 MILLIGRAM, BID (1 IN THE MORNING AND 1 IN THE EVENING)
     Route: 065

REACTIONS (5)
  - Rheumatoid arthritis [Unknown]
  - Sciatica [Unknown]
  - Inflammation [Unknown]
  - Osteoarthritis [Unknown]
  - Off label use [Unknown]
